FAERS Safety Report 19562118 (Version 1)
Quarter: 2021Q3

REPORT INFORMATION
  Report Type: Spontaneous
  Country: CA (occurrence: CA)
  Receive Date: 20210716
  Receipt Date: 20210716
  Transmission Date: 20211014
  Serious: Yes (Life-Threatening, Hospitalization)
  Sender: FDA-Public Use
  Company Number: CA-JNJFOC-20210732454

PATIENT
  Age: 84 Year
  Sex: Male

DRUGS (1)
  1. XARELTO [Suspect]
     Active Substance: RIVAROXABAN
     Indication: PRODUCT USED FOR UNKNOWN INDICATION
     Dosage: 15 MG, QD
     Route: 048

REACTIONS (4)
  - Gastrointestinal haemorrhage [Recovered/Resolved]
  - Anaemia [Recovered/Resolved]
  - Presyncope [Recovered/Resolved]
  - Transfusion [Recovered/Resolved]
